FAERS Safety Report 7576174-0 (Version None)
Quarter: 2011Q2

REPORT INFORMATION
  Report Type: 
  Country: None (occurrence: None)
  Receive Date: 20110623
  Receipt Date: 20110623
  Transmission Date: 20111010
  Serious: Yes (Hospitalization)
  Sender: FDA-Public Use
  Company Number: None

PATIENT
  Sex: Female
  Weight: 83.3 kg

DRUGS (2)
  1. CARBOPLATIN [Suspect]
     Dosage: 430 MG
  2. TAXOL [Suspect]
     Dosage: 345 MG

REACTIONS (8)
  - NAUSEA [None]
  - POLLAKIURIA [None]
  - DEEP VEIN THROMBOSIS [None]
  - HYDROURETER [None]
  - DECREASED APPETITE [None]
  - FALL [None]
  - PULMONARY EMBOLISM [None]
  - HEAD INJURY [None]
